FAERS Safety Report 7000603-4 (Version None)
Quarter: 2010Q3

REPORT INFORMATION
  Report Type: 
  Country: None (occurrence: None)
  Receive Date: 20100920
  Receipt Date: 20100910
  Transmission Date: 20110219
  Serious: Yes (Other)
  Sender: FDA-Public Use
  Company Number: US-JNJFOC-20100702459

PATIENT
  Sex: Female
  Weight: 81.65 kg

DRUGS (9)
  1. TOPAMAX [Suspect]
     Indication: MIGRAINE PROPHYLAXIS
     Route: 048
  2. TOPAMAX [Suspect]
     Route: 048
  3. TOPAMAX [Suspect]
     Route: 048
  4. METHADONE HCL [Concomitant]
     Indication: PAIN IN EXTREMITY
     Route: 048
  5. METHADONE HCL [Concomitant]
     Indication: BACK PAIN
     Route: 048
  6. TRAMADOL [Concomitant]
     Route: 065
  7. BUPROPION [Concomitant]
     Route: 065
  8. SUMATRIPTAN [Concomitant]
     Route: 065
  9. UNKNOWN MEDICATION [Concomitant]
     Route: 065

REACTIONS (2)
  - DEAFNESS BILATERAL [None]
  - TREATMENT NONCOMPLIANCE [None]
